FAERS Safety Report 4919183-X (Version None)
Quarter: 2006Q1

REPORT INFORMATION
  Report Type: 
  Country: None (occurrence: None)
  Receive Date: 20060113
  Receipt Date: 20051024
  Transmission Date: 20060701
  Serious: No
  Sender: FDA-Public Use
  Company Number: 2005SP002064

PATIENT
  Age: 55 Year
  Sex: Female
  Weight: 104.3273 kg

DRUGS (13)
  1. LUNESTA [Suspect]
     Indication: INSOMNIA
     Dosage: 3 MG;HS;ORAL
     Route: 048
     Dates: start: 20050601, end: 20050601
  2. EFFEXOR [Concomitant]
  3. PREVACID [Concomitant]
  4. FEOSOL [Concomitant]
  5. VITAMIN B COMPLEX CAP [Concomitant]
  6. VITAMIN E [Concomitant]
  7. BIOTIN [Concomitant]
  8. GARLIC [Concomitant]
  9. ZINC [Concomitant]
  10. FOLIC ACID [Concomitant]
  11. CHROMIUM PICOLINATE [Concomitant]
  12. FLEXERIL [Concomitant]
  13. DARCOVET N 100 [Concomitant]

REACTIONS (7)
  - AGITATION [None]
  - HOMICIDAL IDEATION [None]
  - INSOMNIA [None]
  - NERVOUSNESS [None]
  - SOMNOLENCE [None]
  - SUICIDAL IDEATION [None]
  - THINKING ABNORMAL [None]
